FAERS Safety Report 4975836-9 (Version None)
Quarter: 2006Q2

REPORT INFORMATION
  Report Type: 
  Country: None (occurrence: None)
  Receive Date: 20060411
  Receipt Date: 20060328
  Transmission Date: 20061013
  Serious: Yes (Hospitalization, Other)
  Sender: FDA-Public Use
  Company Number: 8015373

PATIENT
  Age: 50 Year
  Sex: Female

DRUGS (7)
  1. KEPPRA [Suspect]
     Indication: EPILEPSY
     Dosage: 500 MG 2/D PO
     Route: 048
     Dates: start: 20051105, end: 20051205
  2. KEPPRA [Suspect]
     Indication: EPILEPSY
     Dosage: 1000 MG 2/D PO
     Route: 048
     Dates: start: 20051206, end: 20060224
  3. KEPPRA [Suspect]
     Indication: EPILEPSY
     Dosage: 500 MG 2/D PO
     Route: 048
     Dates: start: 20060301
  4. CARBAMAZEPINE [Suspect]
     Indication: EPILEPSY
     Dosage: 800 MG /D PO
     Route: 048
  5. CARBAMAZEPINE [Suspect]
     Indication: EPILEPSY
     Dosage: ONCE PO
     Route: 048
     Dates: start: 20060223, end: 20060223
  6. VALPROIC ACID [Suspect]
     Indication: EPILEPSY
     Dosage: 750 MG 2/D PO
     Route: 048
     Dates: end: 20060225
  7. VALPROIC ACID [Suspect]
     Indication: EPILEPSY
     Dosage: 500 MG 2/D PO
     Route: 048
     Dates: start: 20060226

REACTIONS (3)
  - DEPRESSED LEVEL OF CONSCIOUSNESS [None]
  - OVERDOSE [None]
  - THROMBOCYTOPENIA [None]
